FAERS Safety Report 20646788 (Version 19)
Quarter: 2022Q4

REPORT INFORMATION
  Report Type: Spontaneous
  Country: GB (occurrence: GB)
  Receive Date: 20220329
  Receipt Date: 20221124
  Transmission Date: 20230112
  Serious: Yes (Death, Congenital Anomaly, Other)
  Sender: FDA-Public Use
  Company Number: GB-drreddys-GER/UKI/17/0093235

PATIENT
  Age: 23 Year
  Sex: Male

DRUGS (6)
  1. PREGABALIN [Interacting]
     Active Substance: PREGABALIN
     Indication: Product used for unknown indication
     Route: 048
     Dates: start: 20170317
  2. PREGABALIN [Interacting]
     Active Substance: PREGABALIN
     Route: 048
     Dates: start: 20170317
  3. COCAINE HYDROCHLORIDE [Interacting]
     Active Substance: COCAINE HYDROCHLORIDE
     Indication: Product used for unknown indication
     Dosage: UNK
     Route: 048
  4. DIAZEPAM [Interacting]
     Active Substance: DIAZEPAM
     Indication: Product used for unknown indication
     Route: 048
     Dates: start: 20170317
  5. ZOPICLONE [Interacting]
     Active Substance: ZOPICLONE
     Indication: Product used for unknown indication
     Dosage: UNK
     Route: 048
  6. ALCOHOL [Interacting]
     Active Substance: ALCOHOL
     Indication: Product used for unknown indication

REACTIONS (11)
  - Cardiac failure [Fatal]
  - Incoherent [Fatal]
  - Toxicity to various agents [Fatal]
  - Gait disturbance [Fatal]
  - Fall [Fatal]
  - Alcohol interaction [Fatal]
  - Drug interaction [Fatal]
  - Loss of consciousness [Fatal]
  - Snoring [Fatal]
  - Drug abuse [Fatal]
  - Overdose [Unknown]

NARRATIVE: CASE EVENT DATE: 20170317
